FAERS Safety Report 5331073-X (Version None)
Quarter: 2007Q2

REPORT INFORMATION
  Report Type: 
  Country: None (occurrence: None)
  Receive Date: 20070522
  Receipt Date: 20070518
  Transmission Date: 20071010
  Serious: Yes (Death)
  Sender: FDA-Public Use
  Company Number: A0613505A

PATIENT
  Age: 34 Year
  Sex: Female
  Weight: 54.5 kg

DRUGS (3)
  1. WELLBUTRIN [Suspect]
     Indication: DRUG USE FOR UNKNOWN INDICATION
     Dosage: 300MG UNKNOWN
     Route: 048
     Dates: end: 20060701
  2. ALCOHOL [Concomitant]
  3. COCAINE [Concomitant]

REACTIONS (12)
  - ARTERIOSCLEROSIS [None]
  - CONTUSION [None]
  - DRUG TOXICITY [None]
  - HAEMORRHAGE [None]
  - HEPATIC STEATOSIS [None]
  - MORBID THOUGHTS [None]
  - NASAL SEPTUM PERFORATION [None]
  - PULMONARY CONGESTION [None]
  - PULMONARY OEDEMA [None]
  - SNORING [None]
  - SPLENOMEGALY [None]
  - TONGUE BITING [None]
